FAERS Safety Report 6143079-1 (Version None)
Quarter: 2009Q2

REPORT INFORMATION
  Report Type: 
  Country: None (occurrence: None)
  Receive Date: 20090403
  Receipt Date: 20090326
  Transmission Date: 20091009
  Serious: Yes (Other)
  Sender: FDA-Public Use
  Company Number: US-SANOFI-SYNTHELABO-A03200901307

PATIENT
  Age: 40 Year
  Sex: Female

DRUGS (1)
  1. AMBIEN [Suspect]
     Indication: SLEEP DISORDER
     Dosage: TAKES MORE THAN 1 TABLET PER NIGHT
     Route: 048

REACTIONS (4)
  - BILE DUCT OBSTRUCTION [None]
  - BILIARY DILATATION [None]
  - DRUG ABUSE [None]
  - FLANK PAIN [None]
